FAERS Safety Report 8838720 (Version 2)
Quarter: 2012Q4

REPORT INFORMATION
  Report Type: 
  Country: DE (occurrence: DE)
  Receive Date: 20121012
  Receipt Date: 20121024
  Transmission Date: 20130627
  Serious: Yes (Death, Life-Threatening, Other)
  Sender: FDA-Public Use
  Company Number: DE-B.I. PHARMACEUTICALS,INC./RIDGEFIELD-2012-DE-02406DE

PATIENT
  Age: 8 None
  Sex: Female

DRUGS (3)
  1. PRADAXA [Suspect]
     Indication: ATRIAL FIBRILLATION
     Dosage: 150 mg
     Dates: start: 201201, end: 201204
  2. PRADAXA [Suspect]
     Dosage: 150 mg
  3. CLEXANE [Concomitant]

REACTIONS (7)
  - Adrenal gland cancer [Fatal]
  - Epistaxis [Unknown]
  - Pulmonary embolism [Unknown]
  - Haemorrhage [Unknown]
  - Impaired healing [Unknown]
  - Xeroderma [Unknown]
  - Haematochezia [Unknown]
